FAERS Safety Report 19499094 (Version 2)
Quarter: 2021Q3

REPORT INFORMATION
  Report Type: Spontaneous
  Country: US (occurrence: US)
  Receive Date: 20210707
  Receipt Date: 20210716
  Transmission Date: 20211014
  Serious: Yes (Other)
  Sender: FDA-Public Use
  Company Number: US-BEH-2021133610

PATIENT
  Age: 14 Year
  Sex: Male

DRUGS (3)
  1. HIZENTRA [Suspect]
     Active Substance: HUMAN IMMUNOGLOBULIN G
     Dosage: UNK, QW
     Route: 058
  2. HPV VACCINE [Suspect]
     Active Substance: HUMAN PAPILLOMAVIRUS QUADRIVALENT (TYPES 6, 11, 16, AND 18) VACCINE, RECOMBINANT
     Dosage: UNK
     Route: 065
  3. PNEUMOCOCCAL VACCINE POLYVALENT NOS [Suspect]
     Active Substance: PNEUMOCOCCAL VACCINE POLYVALENT
     Dosage: UNK
     Route: 065

REACTIONS (9)
  - Pyrexia [Unknown]
  - Epstein-Barr virus antigen positive [Unknown]
  - Lymphadenopathy [Unknown]
  - Suspected transmission of an infectious agent via product [Unknown]
  - Misleading laboratory test result [Unknown]
  - Nephrolithiasis [Unknown]
  - Oropharyngeal pain [Unknown]
  - Fatigue [Unknown]
  - Headache [Unknown]

NARRATIVE: CASE EVENT DATE: 2021
